FAERS Safety Report 12855496 (Version 1)
Quarter: 2016Q4

REPORT INFORMATION
  Report Type: Spontaneous
  Country: US (occurrence: US)
  Receive Date: 20161017
  Receipt Date: 20161017
  Transmission Date: 20170207
  Serious: Yes (Other)
  Sender: FDA-Public Use
  Company Number: US-GILEAD-2016-0237650

PATIENT
  Age: 90 Year
  Sex: Female

DRUGS (1)
  1. ZYDELIG [Suspect]
     Active Substance: IDELALISIB
     Indication: PRODUCT USED FOR UNKNOWN INDICATION
     Dosage: 100 MG, BID
     Route: 065

REACTIONS (6)
  - Red blood cell sedimentation rate increased [Unknown]
  - Asthenia [Unknown]
  - Dehydration [Unknown]
  - Dizziness [Unknown]
  - Decreased appetite [Unknown]
  - Lung infiltration [Unknown]

NARRATIVE: CASE EVENT DATE: 2016
